FAERS Safety Report 9772874 (Version 1)
Quarter: 2013Q4

REPORT INFORMATION
  Report Type: Spontaneous
  Country: CL (occurrence: CL)
  Receive Date: 20131219
  Receipt Date: 20131219
  Transmission Date: 20140711
  Serious: Yes (Other)
  Sender: FDA-Public Use
  Company Number: CL-ELI_LILLY_AND_COMPANY-CL201312004748

PATIENT
  Age: 54 Year
  Sex: Female

DRUGS (3)
  1. GEMCITABINE HYDROCHLORIDE [Suspect]
     Indication: METASTASES TO BONE
     Dosage: 1200 MG, OTHER
     Route: 065
  2. TRASTUZUMAB [Concomitant]
     Indication: METASTASES TO BONE
     Dosage: 100 MG, OTHER
     Route: 065
  3. LETROZOLE [Concomitant]
     Indication: PRODUCT USED FOR UNKNOWN INDICATION
     Route: 065

REACTIONS (3)
  - Recall phenomenon [Unknown]
  - Myositis [Unknown]
  - Enterocolitis [Unknown]
